FAERS Safety Report 10238203 (Version 1)
Quarter: 2014Q2

REPORT INFORMATION
  Report Type: Spontaneous
  Country: US (occurrence: US)
  Receive Date: 20140616
  Receipt Date: 20140616
  Transmission Date: 20141212
  Serious: Yes (Hospitalization, Other)
  Sender: FDA-Public Use
  Company Number: US-JNJFOC-20140602197

PATIENT
  Age: 57 Year
  Sex: Female

DRUGS (6)
  1. RISPERDAL [Suspect]
     Indication: PRODUCT USED FOR UNKNOWN INDICATION
     Route: 048
  2. RISPERIDAL CONSTA [Suspect]
     Indication: PRODUCT USED FOR UNKNOWN INDICATION
     Route: 030
  3. DEPAKOTE [Concomitant]
     Indication: MOOD SWINGS
     Route: 048
     Dates: start: 2013
  4. DEPAKOTE [Concomitant]
     Indication: MOOD SWINGS
     Dosage: 500MG/TABLET/500MG/DAILY/ORAL??1000MG/TABLET/500MG/DAILY/ORAL
     Route: 048
     Dates: start: 2013
  5. METFORMIN [Concomitant]
     Indication: DIABETES MELLITUS
     Route: 048
     Dates: start: 2011
  6. ATENOLOL [Concomitant]
     Indication: HYPERTENSION
     Route: 048
     Dates: start: 2009

REACTIONS (7)
  - Hospitalisation [Recovered/Resolved]
  - Suicidal ideation [Not Recovered/Not Resolved]
  - Blood pressure increased [Not Recovered/Not Resolved]
  - Headache [Not Recovered/Not Resolved]
  - Dry mouth [Unknown]
  - Drug ineffective [Not Recovered/Not Resolved]
  - Adverse drug reaction [Unknown]
